FAERS Safety Report 15956686 (Version 1)
Quarter: 2019Q1

REPORT INFORMATION
  Report Type: Spontaneous
  Country: US (occurrence: US)
  Receive Date: 20190122
  Receipt Date: 20190122
  Transmission Date: 20190417
  Serious: No
  Sender: FDA-Public Use
  Company Number: None

PATIENT
  Age: 82 Year
  Sex: Male

DRUGS (1)
  1. CAPECITABINE TAB 500MG [Suspect]
     Active Substance: CAPECITABINE
     Dates: start: 20181102, end: 20190122

REACTIONS (2)
  - Pain in extremity [None]
  - Gait disturbance [None]

NARRATIVE: CASE EVENT DATE: 20190122
